FAERS Safety Report 16471358 (Version 3)
Quarter: 2019Q4

REPORT INFORMATION
  Report Type: Spontaneous
  Country: US (occurrence: US)
  Receive Date: 20190624
  Receipt Date: 20191028
  Transmission Date: 20200122
  Serious: Yes (Hospitalization)
  Sender: FDA-Public Use
  Company Number: US-ACTELION-A-NJ2019-192170

PATIENT
  Sex: Female
  Weight: 49.43 kg

DRUGS (5)
  1. ADEMPAS [Concomitant]
     Active Substance: RIOCIGUAT
  2. VELETRI [Suspect]
     Active Substance: EPOPROSTENOL
     Dosage: 19 NG/KG, PER MIN
     Route: 042
  3. VELETRI [Suspect]
     Active Substance: EPOPROSTENOL
     Dosage: 10 NG/KG, PER MIN
     Route: 042
  4. VELETRI [Suspect]
     Active Substance: EPOPROSTENOL
     Indication: PULMONARY ARTERIAL HYPERTENSION
     Dosage: 14 NG/KG, PER MIN
     Route: 042
  5. OPSUMIT [Concomitant]
     Active Substance: MACITENTAN

REACTIONS (6)
  - Catheter site rash [Unknown]
  - Device leakage [Recovered/Resolved]
  - Sepsis [Unknown]
  - Skin irritation [Unknown]
  - Catheter site erythema [Unknown]
  - Asthenia [Recovered/Resolved]
